FAERS Safety Report 5719889-9 (Version None)
Quarter: 2008Q2

REPORT INFORMATION
  Report Type: 
  Country: None (occurrence: None)
  Receive Date: 20080428
  Receipt Date: 20070717
  Transmission Date: 20081010
  Serious: Yes (Life-Threatening)
  Sender: FDA-Public Use
  Company Number: A0664603A

PATIENT
  Age: 42 Year
  Sex: Female

DRUGS (2)
  1. ZOFRAN [Suspect]
     Indication: NAUSEA
     Dosage: 4MG TWICE PER DAY
     Route: 048
     Dates: start: 20070702, end: 20070716
  2. UNKNOWN [Concomitant]

REACTIONS (5)
  - ANAPHYLACTIC REACTION [None]
  - DYSPNOEA [None]
  - LARYNGEAL OEDEMA [None]
  - PRURITUS [None]
  - URTICARIA [None]
